FAERS Safety Report 6410781-3 (Version None)
Quarter: 2009Q4

REPORT INFORMATION
  Report Type: 
  Country: None (occurrence: None)
  Receive Date: 20091016
  Receipt Date: 20091007
  Transmission Date: 20100525
  Serious: Yes (Hospitalization, Other)
  Sender: FDA-Public Use
  Company Number: 2009SP017372

PATIENT
  Age: 53 Year
  Sex: Female
  Weight: 68.0396 kg

DRUGS (10)
  1. NUVARING           (ETONOGESTREL / ETHINYLESTRADIOL) [Suspect]
     Indication: HORMONE REPLACEMENT THERAPY
     Dosage: 1DF; QM; VAG
     Dates: start: 20030801, end: 20070101
  2. MOBIC [Concomitant]
  3. SKELAXIN [Concomitant]
  4. ALEVE [Concomitant]
  5. AMBIEN CR [Concomitant]
  6. ALLEGRA [Concomitant]
  7. ZOLOFT [Concomitant]
  8. EFFEXOR XR [Concomitant]
  9. PREDNISONE [Concomitant]
  10. TRETINOIN [Concomitant]

REACTIONS (13)
  - FOLLICULITIS [None]
  - HOT FLUSH [None]
  - HYPOAESTHESIA [None]
  - INTERVERTEBRAL DISC PROTRUSION [None]
  - MOOD SWINGS [None]
  - NAUSEA [None]
  - PARAESTHESIA [None]
  - PULMONARY EMBOLISM [None]
  - RADICULITIS [None]
  - SKIN CANCER [None]
  - URINARY TRACT DISORDER [None]
  - VOMITING [None]
  - VULVAL DISORDER [None]
